FAERS Safety Report 8995180 (Version 1)
Quarter: 2012Q4

REPORT INFORMATION
  Report Type: Spontaneous
  Country: US (occurrence: None)
  Receive Date: 20121228
  Receipt Date: 20121228
  Transmission Date: 20130627
  Serious: Yes (Hospitalization)
  Sender: FDA-Public Use
  Company Number: None

PATIENT
  Age: 31 Year
  Sex: Female
  Weight: 99.7 kg

DRUGS (1)
  1. CARBAMAZEPINE [Suspect]
     Indication: BIPOLAR AFFECTIVE DISORDER, MIXED
     Dosage: 200 MG BID PO
     Route: 048
     Dates: start: 20120830, end: 20121010

REACTIONS (5)
  - Pyrexia [None]
  - Urticaria [None]
  - Pruritus [None]
  - Rash macular [None]
  - Eosinophilia [None]
